FAERS Safety Report 4913773-6 (Version None)
Quarter: 2006Q1

REPORT INFORMATION
  Report Type: 
  Country: None (occurrence: None)
  Receive Date: 20060216
  Receipt Date: 20050609
  Transmission Date: 20060701
  Serious: Yes (Hospitalization)
  Sender: FDA-Public Use
  Company Number: FR-GLAXOSMITHKLINE-B0384492A

PATIENT
  Age: 62 Year
  Sex: Male

DRUGS (25)
  1. AUGMENTIN '125' [Suspect]
     Indication: SUPERINFECTION LUNG
     Dosage: 3G PER DAY
     Route: 042
     Dates: start: 20050506, end: 20050511
  2. COVERSYL [Suspect]
     Route: 048
     Dates: start: 20050507, end: 20050527
  3. CLAFORAN [Suspect]
     Indication: SUPERINFECTION LUNG
     Dosage: 2G THREE TIMES PER DAY
     Route: 042
     Dates: start: 20050511, end: 20050519
  4. TARGOCID [Concomitant]
     Indication: SUPERINFECTION LUNG
     Dosage: 400MG PER DAY
     Route: 042
     Dates: start: 20050511, end: 20050523
  5. LASILIX [Concomitant]
     Dosage: 40MG PER DAY
     Route: 042
     Dates: start: 20050518, end: 20050521
  6. SERETIDE [Concomitant]
     Route: 065
  7. AMODEX [Concomitant]
     Indication: SUPERINFECTION LUNG
     Route: 065
     Dates: start: 20050519
  8. SURBRONC [Concomitant]
     Route: 065
  9. MONOTILDIEM [Concomitant]
     Route: 065
  10. NEURONTIN [Concomitant]
     Dosage: 1200MG PER DAY
     Route: 065
  11. KARDEGIC [Concomitant]
     Route: 065
  12. FUROSEMIDE [Concomitant]
     Route: 065
  13. IKOREL [Concomitant]
     Dosage: 20MG TWICE PER DAY
     Route: 065
  14. COZAAR [Concomitant]
     Route: 065
  15. COMBIVENT [Concomitant]
     Route: 065
  16. ZOCOR [Concomitant]
     Route: 065
  17. AMPECYCLAL [Concomitant]
     Route: 065
  18. SOLUPRED [Concomitant]
     Dosage: 20MG PER DAY
     Route: 065
  19. PLAVIX [Concomitant]
     Route: 065
     Dates: start: 20050507, end: 20050529
  20. ACTRAPID [Concomitant]
     Route: 065
     Dates: start: 20050507, end: 20050519
  21. MIXTARD HUMAN 70/30 [Concomitant]
     Route: 065
     Dates: start: 20050519
  22. HEPARIN [Concomitant]
     Route: 065
  23. CALCIPARINE [Concomitant]
     Route: 065
  24. FLAGYL [Concomitant]
     Indication: SUPERINFECTION LUNG
     Route: 065
     Dates: start: 20050511, end: 20050519
  25. ART 50 [Concomitant]
     Route: 065

REACTIONS (5)
  - LEUKOCYTOSIS [None]
  - NEUTROPHIL COUNT INCREASED [None]
  - PUSTULAR PSORIASIS [None]
  - RASH ERYTHEMATOUS [None]
  - RASH PUSTULAR [None]
